FAERS Safety Report 15798069 (Version 1)
Quarter: 2019Q1

REPORT INFORMATION
  Report Type: Report from Study
  Country: JP (occurrence: JP)
  Receive Date: 20190108
  Receipt Date: 20190108
  Transmission Date: 20190417
  Serious: Yes (Other)
  Sender: FDA-Public Use
  Company Number: PHJP2017JP004996

PATIENT
  Age: 48 Year
  Sex: Male
  Weight: 83 kg

DRUGS (11)
  1. TEPRENONE [Concomitant]
     Active Substance: TEPRENONE
     Indication: CHRONIC GASTRITIS
     Dosage: 150 MG, UNK
     Route: 048
     Dates: end: 20170609
  2. COSENTYX [Suspect]
     Active Substance: SECUKINUMAB
     Dosage: 300 MG, QW
     Route: 058
     Dates: start: 20170103, end: 20170103
  3. DOVOBET [Concomitant]
     Active Substance: BETAMETHASONE\CALCIPOTRIENE
     Indication: PSORIASIS
     Dosage: 1 G, UNK
     Route: 061
     Dates: end: 20170609
  4. CLARITH [Concomitant]
     Active Substance: CLARITHROMYCIN
     Indication: FOLLICULITIS
     Dosage: 400 MG, UNK
     Route: 048
     Dates: end: 20161102
  5. COSENTYX [Suspect]
     Active Substance: SECUKINUMAB
     Dosage: 300 MG, QW
     Route: 058
     Dates: start: 20161227, end: 20170103
  6. COSENTYX [Suspect]
     Active Substance: SECUKINUMAB
     Indication: PSORIASIS
     Dosage: 300 MG (INJECTION PEN), QW
     Route: 058
     Dates: start: 20161206
  7. COSENTYX [Suspect]
     Active Substance: SECUKINUMAB
     Dosage: 300 MG, QW
     Route: 058
     Dates: start: 20161220
  8. LOXOPROFEN [Concomitant]
     Active Substance: LOXOPROFEN
     Indication: PRODUCT USED FOR UNKNOWN INDICATION
     Dosage: 180 MG, UNK
     Route: 048
     Dates: end: 20161102
  9. RULID [Concomitant]
     Active Substance: ROXITHROMYCIN
     Indication: PRODUCT USED FOR UNKNOWN INDICATION
     Dosage: UNK
     Route: 065
  10. COSENTYX [Suspect]
     Active Substance: SECUKINUMAB
     Dosage: 300 MG, QW
     Route: 058
     Dates: start: 20161213
  11. ALMETA [Concomitant]
     Active Substance: ALCLOMETASONE DIPROPIONATE
     Indication: PSORIASIS
     Dosage: 0.05 G, UNK
     Route: 061
     Dates: end: 20170609

REACTIONS (9)
  - Erythema [Recovered/Resolved]
  - Swelling [Unknown]
  - Pain [Unknown]
  - Pyrexia [Unknown]
  - Induration [Unknown]
  - Rash pustular [Recovered/Resolved]
  - Musculoskeletal pain [Unknown]
  - Rash erythematous [Recovered/Resolved]
  - Pigmentation disorder [Unknown]

NARRATIVE: CASE EVENT DATE: 201701
